FAERS Safety Report 11098137 (Version 1)
Quarter: 2015Q2

REPORT INFORMATION
  Report Type: Spontaneous
  Country: GB (occurrence: GB)
  Receive Date: 20150507
  Receipt Date: 20150507
  Transmission Date: 20150821
  Serious: Yes (Congenital Anomaly)
  Sender: FDA-Public Use
  Company Number: PHHY2015GB054925

PATIENT

DRUGS (3)
  1. DIGOXIN. [Suspect]
     Active Substance: DIGOXIN
     Route: 064
  2. BISOPROLOL [Suspect]
     Active Substance: BISOPROLOL
     Route: 064
  3. TEGRETOL [Suspect]
     Active Substance: CARBAMAZEPINE
     Route: 064

REACTIONS (1)
  - Cleft palate [Unknown]
